FAERS Safety Report 8265783-1 (Version None)
Quarter: 2012Q2

REPORT INFORMATION
  Report Type: 
  Country: None (occurrence: None)
  Receive Date: 20120406
  Receipt Date: 20120402
  Transmission Date: 20120825
  Serious: Yes (Other)
  Sender: FDA-Public Use
  Company Number: PHHY2009CA27731

PATIENT
  Sex: Female

DRUGS (1)
  1. SANDOSTATIN LAR [Suspect]
     Indication: ACROMEGALY
     Dosage: 40 MG EVERY 3 WEEKS
     Route: 030
     Dates: start: 20040715

REACTIONS (8)
  - ABDOMINAL PAIN UPPER [None]
  - FATIGUE [None]
  - ARTHRALGIA [None]
  - BLOOD PRESSURE SYSTOLIC INCREASED [None]
  - ASTHENIA [None]
  - INJECTION SITE CALCIFICATION [None]
  - ABDOMINAL PAIN [None]
  - NECROSIS [None]
